FAERS Safety Report 9095090 (Version 1)
Quarter: 2013Q1

REPORT INFORMATION
  Report Type: Spontaneous
  Country: US (occurrence: None)
  Receive Date: 20130214
  Receipt Date: 20130214
  Transmission Date: 20140127
  Serious: Yes (Other)
  Sender: FDA-Public Use
  Company Number: None

PATIENT
  Age: 16 Year
  Sex: Male
  Weight: 107.96 kg

DRUGS (1)
  1. QUETIAPINE GENERIC 600 MG QHS [Suspect]
     Indication: BIPOLAR DISORDER
     Dates: start: 20130206

REACTIONS (4)
  - Product substitution issue [None]
  - Irritability [None]
  - Insomnia [None]
  - Drug ineffective [None]
